FAERS Safety Report 21462279 (Version 1)
Quarter: 2022Q4

REPORT INFORMATION
  Report Type: Spontaneous
  Country: US (occurrence: US)
  Receive Date: 20221016
  Receipt Date: 20221016
  Transmission Date: 20230113
  Serious: No
  Sender: FDA-Public Use
  Company Number: US-JNJFOC-20221024894

PATIENT
  Age: 76 Year
  Sex: Female

DRUGS (38)
  1. IBUPROFEN [Suspect]
     Active Substance: IBUPROFEN
     Indication: Rhinorrhoea
     Route: 065
     Dates: start: 202210
  2. IBUPROFEN [Suspect]
     Active Substance: IBUPROFEN
     Indication: Upper-airway cough syndrome
  3. IBUPROFEN [Suspect]
     Active Substance: IBUPROFEN
     Indication: Sneezing
  4. IBUPROFEN [Suspect]
     Active Substance: IBUPROFEN
     Indication: Sinus congestion
  5. IBUPROFEN [Suspect]
     Active Substance: IBUPROFEN
     Indication: Cough
  6. IBUPROFEN [Suspect]
     Active Substance: IBUPROFEN
     Indication: Chills
  7. IBUPROFEN [Suspect]
     Active Substance: IBUPROFEN
     Indication: Fatigue
  8. IBUPROFEN [Suspect]
     Active Substance: IBUPROFEN
     Indication: Dyspnoea exertional
  9. PSEUDOEPHEDRINE [Concomitant]
     Active Substance: PSEUDOEPHEDRINE
     Indication: Rhinorrhoea
     Route: 065
     Dates: start: 202210
  10. PSEUDOEPHEDRINE [Concomitant]
     Active Substance: PSEUDOEPHEDRINE
     Indication: Upper-airway cough syndrome
  11. PSEUDOEPHEDRINE [Concomitant]
     Active Substance: PSEUDOEPHEDRINE
     Indication: Sneezing
  12. PSEUDOEPHEDRINE [Concomitant]
     Active Substance: PSEUDOEPHEDRINE
     Indication: Sinus congestion
  13. PSEUDOEPHEDRINE [Concomitant]
     Active Substance: PSEUDOEPHEDRINE
     Indication: Cough
  14. PSEUDOEPHEDRINE [Concomitant]
     Active Substance: PSEUDOEPHEDRINE
     Indication: Chills
  15. PSEUDOEPHEDRINE [Concomitant]
     Active Substance: PSEUDOEPHEDRINE
     Indication: Fatigue
  16. PSEUDOEPHEDRINE [Concomitant]
     Active Substance: PSEUDOEPHEDRINE
     Indication: Dyspnoea exertional
  17. DEXTROMETHORPHAN [Concomitant]
     Active Substance: DEXTROMETHORPHAN
     Indication: Rhinorrhoea
     Route: 065
     Dates: start: 202210
  18. DEXTROMETHORPHAN [Concomitant]
     Active Substance: DEXTROMETHORPHAN
     Indication: Upper-airway cough syndrome
  19. DEXTROMETHORPHAN [Concomitant]
     Active Substance: DEXTROMETHORPHAN
     Indication: Sneezing
  20. DEXTROMETHORPHAN [Concomitant]
     Active Substance: DEXTROMETHORPHAN
     Indication: Sinus congestion
  21. DEXTROMETHORPHAN [Concomitant]
     Active Substance: DEXTROMETHORPHAN
     Indication: Cough
  22. DEXTROMETHORPHAN [Concomitant]
     Active Substance: DEXTROMETHORPHAN
     Indication: Chills
  23. DEXTROMETHORPHAN [Concomitant]
     Active Substance: DEXTROMETHORPHAN
     Indication: Fatigue
  24. DEXTROMETHORPHAN [Concomitant]
     Active Substance: DEXTROMETHORPHAN
     Indication: Dyspnoea exertional
  25. LEVOTHYROXINE [Concomitant]
     Active Substance: LEVOTHYROXINE
     Indication: Product used for unknown indication
     Route: 065
  26. OMEPRAZOLE [Concomitant]
     Active Substance: OMEPRAZOLE
     Indication: Product used for unknown indication
     Route: 065
  27. CALCIUM [Concomitant]
     Active Substance: CALCIUM
     Indication: Product used for unknown indication
     Route: 065
  28. OMEGA 3 FISH OIL [FISH OIL] [Concomitant]
     Indication: Product used for unknown indication
     Route: 065
  29. BIOTIN [Concomitant]
     Active Substance: BIOTIN
     Indication: Product used for unknown indication
     Route: 065
  30. VITAMIN D NOS [Concomitant]
     Active Substance: VITAMIN D NOS
     Indication: Product used for unknown indication
     Route: 065
  31. GUAIFENESIN [Concomitant]
     Active Substance: GUAIFENESIN
     Indication: Rhinorrhoea
     Route: 065
  32. GUAIFENESIN [Concomitant]
     Active Substance: GUAIFENESIN
     Indication: Upper-airway cough syndrome
  33. GUAIFENESIN [Concomitant]
     Active Substance: GUAIFENESIN
     Indication: Sneezing
  34. GUAIFENESIN [Concomitant]
     Active Substance: GUAIFENESIN
     Indication: Nasal congestion
  35. GUAIFENESIN [Concomitant]
     Active Substance: GUAIFENESIN
     Indication: Cough
  36. GUAIFENESIN [Concomitant]
     Active Substance: GUAIFENESIN
     Indication: Chills
  37. GUAIFENESIN [Concomitant]
     Active Substance: GUAIFENESIN
     Indication: Fatigue
  38. GUAIFENESIN [Concomitant]
     Active Substance: GUAIFENESIN
     Indication: Dyspnoea exertional

REACTIONS (1)
  - Product use in unapproved indication [Unknown]

NARRATIVE: CASE EVENT DATE: 20221001
